FAERS Safety Report 20840078 (Version 6)
Quarter: 2025Q3

REPORT INFORMATION
  Report Type: Report from Study
  Country: US (occurrence: US)
  Receive Date: 20220517
  Receipt Date: 20250930
  Transmission Date: 20251021
  Serious: No
  Sender: KYOWA
  Company Number: US-KYOWAKIRIN-2022BKK006324

PATIENT

DRUGS (5)
  1. BUROSUMAB [Suspect]
     Active Substance: BUROSUMAB
     Indication: Hereditary hypophosphataemic rickets
     Dosage: UNK, 1X/4 WEEKS
     Route: 065
  2. BUROSUMAB [Suspect]
     Active Substance: BUROSUMAB
     Indication: Hereditary hypophosphataemic rickets
     Dosage: 90 MG, 1X/4 WEEKS
     Route: 058
     Dates: start: 202005
  3. BUROSUMAB [Suspect]
     Active Substance: BUROSUMAB
     Dosage: 90 MG, 1X/4 WEEKS
     Route: 058
     Dates: start: 202006
  4. BUROSUMAB [Suspect]
     Active Substance: BUROSUMAB
     Dosage: 90 MG, 1X/4 WEEKS
     Route: 058
     Dates: start: 202006
  5. BUROSUMAB [Suspect]
     Active Substance: BUROSUMAB
     Dosage: 90 MG, 1X/4 WEEKS
     Route: 058

REACTIONS (5)
  - Dental caries [Unknown]
  - Arthralgia [Unknown]
  - Pain in extremity [Unknown]
  - Restless legs syndrome [Not Recovered/Not Resolved]
  - Therapy interrupted [Unknown]
